FAERS Safety Report 21588232 (Version 1)
Quarter: 2022Q4

REPORT INFORMATION
  Report Type: Report from Study
  Country: US (occurrence: US)
  Receive Date: 20221114
  Receipt Date: 20221114
  Transmission Date: 20230113
  Serious: No
  Sender: FDA-Public Use
  Company Number: US-ABBVIE-4194789

PATIENT
  Sex: Female

DRUGS (1)
  1. VENCLEXTA [Suspect]
     Active Substance: VENETOCLAX
     Indication: Plasma cell myeloma
     Dosage: FIRST ADMIN DATE: 24 OCT 2022?FORM STRENGTH: 400 MILLIGRAM
     Route: 048
     Dates: start: 20221024

REACTIONS (4)
  - Off label use [Unknown]
  - Discomfort [Unknown]
  - Asthenia [Unknown]
  - Nasopharyngitis [Unknown]

NARRATIVE: CASE EVENT DATE: 20220101
